FAERS Safety Report 5700349-6 (Version None)
Quarter: 2008Q2

REPORT INFORMATION
  Report Type: 
  Country: None (occurrence: None)
  Receive Date: 20080410
  Receipt Date: 20080402
  Transmission Date: 20081010
  Serious: Yes (Other)
  Sender: FDA-Public Use
  Company Number: US-ALLERGAN-0803891US

PATIENT
  Sex: Female

DRUGS (1)
  1. REFRESH TEARS [Suspect]
     Indication: DRY EYE
     Dosage: UNK, UNK
     Route: 047
     Dates: end: 20080329

REACTIONS (4)
  - CORNEAL DEGENERATION [None]
  - CORNEAL OEDEMA [None]
  - EYE PRURITUS [None]
  - PUPILLARY DISORDER [None]
